FAERS Safety Report 10244886 (Version 2)
Quarter: 2014Q2

REPORT INFORMATION
  Report Type: Spontaneous
  Country: US (occurrence: US)
  Receive Date: 20140618
  Receipt Date: 20140618
  Transmission Date: 20141212
  Serious: No
  Sender: FDA-Public Use
  Company Number: US-GALDERMA-US14001266

PATIENT
  Age: 19 Year
  Sex: Male

DRUGS (7)
  1. MIRVASO (BRIMONIDINE) TOPICAL GEL, 0.33% [Suspect]
     Indication: ROSACEA
     Dosage: 0.33%
     Route: 061
     Dates: start: 20140324, end: 20140403
  2. MIRVASO (BRIMONIDINE) TOPICAL GEL, 0.33% [Suspect]
     Indication: ROSACEA
     Dosage: 0.33%
     Route: 061
     Dates: start: 20140404, end: 20140404
  3. ELTA MD UV CLEAR SPF 46 [Concomitant]
     Indication: PROPHYLAXIS AGAINST SOLAR RADIATION
     Route: 061
     Dates: start: 201402
  4. PROTOPIC (TACROLIMUS) [Concomitant]
     Indication: PSORIASIS
     Dosage: 0.1
     Route: 061
     Dates: start: 201212
  5. CLOBETASOL PROPIONATE (CLOBETASOL PROPIONATE) [Concomitant]
     Indication: PSORIASIS
     Dosage: 0.05%
     Route: 061
     Dates: start: 201212
  6. CETAPHIL GENTLE SKIN CLEANSER [Concomitant]
     Indication: THERAPEUTIC SKIN CARE TOPICAL
     Route: 061
     Dates: start: 201403
  7. ELIDEL [Concomitant]
     Dosage: 1%
     Route: 061
     Dates: start: 201404

REACTIONS (8)
  - Rebound effect [Recovered/Resolved]
  - Condition aggravated [Recovered/Resolved]
  - Pallor [Recovered/Resolved]
  - Tremor [Recovered/Resolved]
  - Pain of skin [Recovered/Resolved]
  - Erythema [Recovered/Resolved]
  - Flushing [Recovered/Resolved]
  - Drug effect decreased [Recovered/Resolved]
